FAERS Safety Report 13231086 (Version 3)
Quarter: 2017Q2

REPORT INFORMATION
  Report Type: Spontaneous
  Country: US (occurrence: US)
  Receive Date: 20170214
  Receipt Date: 20170515
  Transmission Date: 20170830
  Serious: Yes (Other)
  Sender: FDA-Public Use
  Company Number: US-PFIZER INC-2016275012

PATIENT
  Age: 57 Year
  Sex: Female

DRUGS (41)
  1. PREMARIN [Concomitant]
     Active Substance: ESTROGENS, CONJUGATED
     Dosage: UNK
     Dates: start: 2015
  2. LACTOSE [Concomitant]
     Active Substance: LACTOSE
     Dosage: UNK
  3. FISH OIL [Concomitant]
     Active Substance: FISH OIL
     Dosage: 1000 MG, DAILY
     Route: 048
     Dates: start: 2000
  4. FOLIC ACID. [Concomitant]
     Active Substance: FOLIC ACID
     Dosage: 1 MG, DAILY
     Route: 048
     Dates: start: 20160105
  5. VITAMIN D [Concomitant]
     Active Substance: CHOLECALCIFEROL
     Dosage: 4000 IU, DAILY
     Route: 048
     Dates: start: 20140218
  6. WELLBUTRIN [Concomitant]
     Active Substance: BUPROPION HYDROCHLORIDE
     Dosage: 100 MG, DAILY (EVERY MORNING)
     Route: 048
     Dates: start: 2000
  7. SYNTHROID [Concomitant]
     Active Substance: LEVOTHYROXINE SODIUM
     Dosage: UNK
     Dates: start: 2004
  8. LORAZEPAM. [Concomitant]
     Active Substance: LORAZEPAM
     Indication: PAIN
     Dosage: 0.5 MG, AS NEEDED (TWICE DAILY)
     Route: 048
     Dates: start: 20161202
  9. DIAZEPAM W/LIDOCAINE HYDROCHLORIDE [Concomitant]
     Dosage: UNK UNK, DAILY
     Route: 067
     Dates: start: 2016
  10. LYRICA [Suspect]
     Active Substance: PREGABALIN
     Indication: PUDENDAL CANAL SYNDROME
     Dosage: 75 MG, 2X/DAY
     Route: 048
     Dates: start: 201603
  11. BUSPIRONE HCL [Concomitant]
     Active Substance: BUSPIRONE HYDROCHLORIDE
     Dosage: 30 MG, 2X/DAY
     Route: 048
     Dates: start: 20140603
  12. DILTIAZEM HCL [Concomitant]
     Active Substance: DILTIAZEM HYDROCHLORIDE
     Dosage: UNK
     Dates: start: 2015
  13. VYTORIN [Concomitant]
     Active Substance: EZETIMIBE\SIMVASTATIN
     Dosage: UNK
     Dates: start: 2012
  14. BUSPAR [Concomitant]
     Active Substance: BUSPIRONE HYDROCHLORIDE
     Dosage: UNK
     Dates: start: 2004
  15. TRAMADOL. [Suspect]
     Active Substance: TRAMADOL
     Indication: PAIN
     Dosage: 50 MG, AS NEEDED
     Route: 048
     Dates: start: 20160328
  16. AMBIEN [Concomitant]
     Active Substance: ZOLPIDEM TARTRATE
     Dosage: UNK
     Dates: start: 2010
  17. VALIUM [Concomitant]
     Active Substance: DIAZEPAM
     Dosage: UNK
  18. VITAMIN D [Concomitant]
     Active Substance: CHOLECALCIFEROL
     Dosage: UNK
     Dates: start: 2015
  19. VYTORIN [Concomitant]
     Active Substance: EZETIMIBE\SIMVASTATIN
     Dosage: 1 DF, DAILY (EZETIMIBE-10 MG, SIMVASTATIN-20MG)
     Route: 048
     Dates: start: 20160204
  20. NASACORT AQ [Concomitant]
     Active Substance: TRIAMCINOLONE ACETONIDE
     Dosage: 55 UG, 2X/DAY (1 (ONE) AEROSOL SOLN)
     Route: 045
     Dates: start: 20130826
  21. BIOTIN [Concomitant]
     Active Substance: BIOTIN
     Dosage: 5000 UG, DAILY
     Route: 048
     Dates: start: 20160105
  22. LISINOPRIL. [Concomitant]
     Active Substance: LISINOPRIL
     Dosage: 20 MG, DAILY
     Route: 048
     Dates: start: 20150212
  23. LISINOPRIL. [Concomitant]
     Active Substance: LISINOPRIL
     Dosage: UNK
     Dates: start: 2014
  24. LYRICA [Suspect]
     Active Substance: PREGABALIN
     Dosage: 150 MG, 2X/DAY
     Dates: start: 20161213
  25. LYRICA [Suspect]
     Active Substance: PREGABALIN
     Dosage: UNK
  26. PREMARIN [Concomitant]
     Active Substance: ESTROGENS, CONJUGATED
     Dosage: 0.5 G, 2X/WEEK (TUES/THURS)
     Route: 067
     Dates: start: 20161207
  27. ALDACTONE [Concomitant]
     Active Substance: SPIRONOLACTONE
     Indication: OEDEMA
     Dosage: 50 MG, AS NEEDED (DAILY)
     Route: 048
     Dates: start: 20160104
  28. BUSPAR [Concomitant]
     Active Substance: BUSPIRONE HYDROCHLORIDE
     Dosage: 30 MG, 2X/DAY
     Route: 048
     Dates: start: 20140603
  29. TRAMADOL. [Suspect]
     Active Substance: TRAMADOL
     Dosage: UNK, AS NEEDED ( 0-4 X /WEEK)
     Route: 048
     Dates: start: 2016
  30. ALDACTONE [Concomitant]
     Active Substance: SPIRONOLACTONE
     Indication: HYPERTENSION
     Dosage: UNK
     Dates: start: 2013
  31. BUSPIRONE HCL [Concomitant]
     Active Substance: BUSPIRONE HYDROCHLORIDE
     Dosage: UNK
     Dates: start: 2005
  32. DILTIAZEM HCL [Concomitant]
     Active Substance: DILTIAZEM HYDROCHLORIDE
     Dosage: 120 MG, DAILY
     Route: 048
     Dates: start: 20160304
  33. VSL#3 [Concomitant]
     Active Substance: PROBIOTICS NOS
     Dosage: 1 DF, 2X/DAY
     Route: 048
     Dates: start: 20150609
  34. SYNTHROID [Concomitant]
     Active Substance: LEVOTHYROXINE SODIUM
     Dosage: 150 UG, WEEKLY (ON FRIDAY) (EMPTY STOMACH 30 BEFORE BREAKFAST)
     Route: 048
     Dates: start: 20160906
  35. LORAZEPAM. [Concomitant]
     Active Substance: LORAZEPAM
     Dosage: UNK (0-2 X/WEEK)
     Dates: start: 2016
  36. AMBIEN [Concomitant]
     Active Substance: ZOLPIDEM TARTRATE
     Dosage: 5 MG, DAILY (AT BEDTIME)
     Route: 048
     Dates: start: 20140624
  37. LAMICTAL [Concomitant]
     Active Substance: LAMOTRIGINE
     Dosage: 300 MG, DAILY
     Route: 048
     Dates: start: 2004
  38. METHYL PHENIDATE [Concomitant]
     Active Substance: METHYLPHENIDATE HYDROCHLORIDE
     Dosage: 10 MG, 3X/DAY
     Route: 048
     Dates: start: 20161005
  39. METHYL PHENIDATE [Concomitant]
     Active Substance: METHYLPHENIDATE HYDROCHLORIDE
     Dosage: UNK
     Dates: start: 2000
  40. ZEGERID [Concomitant]
     Active Substance: OMEPRAZOLE\SODIUM BICARBONATE
     Dosage: 1 DF, AS NEEDED (OMEPRAZOLE-40 MG, SODIUM BICARBONATE-1100 MG), (EMPTY STOMACH)
     Route: 048
     Dates: start: 20150108
  41. LACTULOSE. [Concomitant]
     Active Substance: LACTULOSE
     Indication: CONSTIPATION
     Dosage: UNK, AS NEEDED (2 (TWO) TABLESPOON (ORAL) DAILY )
     Route: 048
     Dates: start: 20160127

REACTIONS (2)
  - Serotonin syndrome [Not Recovered/Not Resolved]
  - Product use in unapproved indication [Unknown]

NARRATIVE: CASE EVENT DATE: 20161220
